FAERS Safety Report 4339990-4 (Version None)
Quarter: 2004Q2

REPORT INFORMATION
  Report Type: 
  Country: None (occurrence: None)
  Receive Date: 20040414
  Receipt Date: 20040414
  Transmission Date: 20050107
  Serious: Yes (Other)
  Sender: FDA-Public Use
  Company Number: None

PATIENT
  Age: 55 Year
  Sex: Male
  Weight: 83.0083 kg

DRUGS (1)
  1. AMBIEN [Suspect]
     Indication: INSOMNIA
     Dosage: 10 MG PO HS PRN
     Route: 048
     Dates: start: 20040322, end: 20040401

REACTIONS (2)
  - CONFUSIONAL STATE [None]
  - DELIRIUM [None]
